FAERS Safety Report 17507788 (Version 1)
Quarter: 2020Q1

REPORT INFORMATION
  Report Type: Spontaneous
  Country: US (occurrence: US)
  Receive Date: 20200305
  Receipt Date: 20200305
  Transmission Date: 20200409
  Serious: No
  Sender: FDA-Public Use
  Company Number: NVSC2020US063287

PATIENT
  Age: 90 Year
  Sex: Female

DRUGS (2)
  1. AZOPT [Suspect]
     Active Substance: BRINZOLAMIDE
     Indication: GLAUCOMA
  2. AZOPT [Suspect]
     Active Substance: BRINZOLAMIDE
     Indication: MACULAR DEGENERATION
     Dosage: UNK
     Route: 065

REACTIONS (1)
  - Overdose [Unknown]
